FAERS Safety Report 12069049 (Version 1)
Quarter: 2016Q1

REPORT INFORMATION
  Report Type: Spontaneous
  Country: DE (occurrence: DE)
  Receive Date: 20160211
  Receipt Date: 20160211
  Transmission Date: 20160526
  Serious: Yes (Hospitalization)
  Sender: FDA-Public Use
  Company Number: DE-VALIDUS PHARMACEUTICALS LLC-DE-2016VAL000154

PATIENT
  Age: 60 Year
  Sex: Female

DRUGS (1)
  1. METOPROLOL TARTRATE. [Suspect]
     Active Substance: METOPROLOL TARTRATE
     Indication: HYPERTENSION
     Dosage: 50 MG, QD

REACTIONS (7)
  - Fatigue [Recovering/Resolving]
  - Hepatic necrosis [Recovering/Resolving]
  - Rash [Recovering/Resolving]
  - Jaundice [Recovering/Resolving]
  - Coagulopathy [Recovering/Resolving]
  - Drug-induced liver injury [Recovering/Resolving]
  - Abdominal pain [Recovering/Resolving]
